FAERS Safety Report 24593295 (Version 1)
Quarter: 2024Q4

REPORT INFORMATION
  Report Type: Other
  Country: DE (occurrence: DE)
  Receive Date: 20241108
  Receipt Date: 20241108
  Transmission Date: 20250115
  Serious: Yes (Hospitalization)
  Sender: B BRAUN
  Company Number: DE-B.Braun Medical Inc.-2164711

PATIENT
  Age: 8 Year
  Sex: Female
  Weight: 29 kg

DRUGS (2)
  1. LEVETIRACETAM [Suspect]
     Active Substance: LEVETIRACETAM
     Indication: Generalised tonic-clonic seizure
  2. MIDAZOLAM [Suspect]
     Active Substance: MIDAZOLAM

REACTIONS (4)
  - Electroencephalogram abnormal [Recovering/Resolving]
  - Product administered to patient of inappropriate age [Recovering/Resolving]
  - Off label use [Recovering/Resolving]
  - Anticonvulsant drug level increased [Recovering/Resolving]
